FAERS Safety Report 9668926 (Version 2)
Quarter: 2013Q4

REPORT INFORMATION
  Report Type: Spontaneous
  Country: US (occurrence: US)
  Receive Date: 20131105
  Receipt Date: 20131206
  Transmission Date: 20140711
  Serious: Yes (Hospitalization)
  Sender: FDA-Public Use
  Company Number: US-VERTEX PHARMACEUTICALS INC-2013-010817

PATIENT
  Age: 55 Year
  Sex: Female
  Weight: 61.22 kg

DRUGS (6)
  1. INCIVEK [Suspect]
     Indication: HEPATITIS C
     Dosage: 750 MG, TID
     Route: 048
     Dates: start: 20131022, end: 201311
  2. RIBAVIRIN [Suspect]
     Indication: HEPATITIS C
     Dosage: 2 TABS, BID
     Dates: start: 20131022, end: 201311
  3. PEGASYS [Suspect]
     Indication: HEPATITIS C
     Dosage: 180 ?G, UNK
     Route: 058
     Dates: start: 20131022, end: 201311
  4. AMLODIPINE [Concomitant]
     Indication: BLOOD PRESSURE INCREASED
     Dosage: UNK, QD
  5. TRIAMTERENE [Concomitant]
     Dosage: UNK, QD
  6. IRON [Concomitant]
     Indication: ANAEMIA
     Dosage: 2 DF, QD
     Route: 048

REACTIONS (8)
  - Blood potassium decreased [Unknown]
  - Muscular weakness [Unknown]
  - Dysstasia [Unknown]
  - Pyrexia [Not Recovered/Not Resolved]
  - Appetite disorder [Unknown]
  - Bone pain [Not Recovered/Not Resolved]
  - Asthenia [Unknown]
  - Diarrhoea [Unknown]
